FAERS Safety Report 18925379 (Version 2)
Quarter: 2021Q1

REPORT INFORMATION
  Report Type: Spontaneous
  Country: GB (occurrence: GB)
  Receive Date: 20210223
  Receipt Date: 20210324
  Transmission Date: 20210420
  Serious: Yes (Hospitalization, Other)
  Sender: FDA-Public Use
  Company Number: GB-ALKEM LABORATORIES LIMITED-GB-ALKEM-2021-00811

PATIENT
  Age: 54 Year
  Sex: Male

DRUGS (6)
  1. PREGABALIN. [Suspect]
     Active Substance: PREGABALIN
     Indication: ANALGESIC THERAPY
     Dosage: 75 MILLIGRAM, BID
     Route: 065
  2. SERTRALINE [Suspect]
     Active Substance: SERTRALINE HYDROCHLORIDE
     Indication: ANALGESIC THERAPY
     Dosage: 150 MILLIGRAM, QD
     Route: 065
  3. PREGABALIN. [Suspect]
     Active Substance: PREGABALIN
     Dosage: 150 MILLIGRAM, BID
     Route: 065
  4. AMITRIPTYLINE [Suspect]
     Active Substance: AMITRIPTYLINE
     Indication: ANALGESIC THERAPY
     Dosage: 25 MILLIGRAM, QD
     Route: 065
  5. TAPENTADOL [Suspect]
     Active Substance: TAPENTADOL
     Indication: ANALGESIC THERAPY
     Dosage: 100 MILLIGRAM, BID
     Route: 065
  6. KETAMINE [Suspect]
     Active Substance: KETAMINE
     Indication: ANALGESIC THERAPY
     Dosage: 20 MILLIGRAM, QID
     Route: 065

REACTIONS (1)
  - Serotonin syndrome [Recovering/Resolving]
